FAERS Safety Report 9067563 (Version 2)
Quarter: 2013Q1

REPORT INFORMATION
  Report Type: Spontaneous
  Country: US (occurrence: US)
  Receive Date: 20130214
  Receipt Date: 20130218
  Transmission Date: 20140127
  Serious: Yes (Hospitalization, Other)
  Sender: FDA-Public Use
  Company Number: US-UCBSA-077830

PATIENT
  Age: 36 None
  Sex: Male

DRUGS (5)
  1. KEPPRA [Suspect]
     Indication: CONVULSION
     Dosage: STRENGTH:750 MG
     Dates: end: 20121230
  2. KEPPRA [Suspect]
     Indication: CONVULSION
     Dates: start: 20130102, end: 20130203
  3. DEPAKOTE [Concomitant]
     Dates: start: 2012
  4. COREG [Concomitant]
     Indication: HYPERTENSION
  5. ASA [Concomitant]
     Indication: CARDIAC DISORDER

REACTIONS (2)
  - Convulsion [Recovered/Resolved]
  - Cardiac arrest [Recovered/Resolved]
